FAERS Safety Report 18890212 (Version 1)
Quarter: 2021Q1

REPORT INFORMATION
  Report Type: Spontaneous
  Country: DE (occurrence: DE)
  Receive Date: 20210214
  Receipt Date: 20210214
  Transmission Date: 20210420
  Serious: Yes (Other)
  Sender: FDA-Public Use
  Company Number: DE-009507513-2102DEU003374

PATIENT
  Sex: Female
  Weight: 100 kg

DRUGS (10)
  1. RANITIDINE. [Suspect]
     Active Substance: RANITIDINE
     Indication: CHRONIC GASTRITIS
  2. RANITIDINE. [Suspect]
     Active Substance: RANITIDINE
     Indication: HIATUS HERNIA
     Dosage: 300 MILLIGRAM (MG), UNKNOWN, STRENGTH: 300 (UNIT NOT REPORTED)
     Route: 065
     Dates: start: 1999
  3. RANITIDINE. [Suspect]
     Active Substance: RANITIDINE
     Indication: GASTROOESOPHAGEAL REFLUX DISEASE
  4. KATADOLON [Suspect]
     Active Substance: FLUPIRTINE
     Indication: PRODUCT USED FOR UNKNOWN INDICATION
     Dosage: UNK UNK, QD
     Route: 065
  5. DOXEPIN HYDROCHLORIDE. [Suspect]
     Active Substance: DOXEPIN HYDROCHLORIDE
     Indication: PRODUCT USED FOR UNKNOWN INDICATION
     Dosage: UNK
     Route: 065
  6. DULOXETINE HYDROCHLORIDE. [Suspect]
     Active Substance: DULOXETINE HYDROCHLORIDE
     Indication: PAIN
     Dosage: 60 MILLIGRAM, QD
     Route: 065
     Dates: end: 201010
  7. NOVALGIN (DIPYRONE) [Suspect]
     Active Substance: DIPYRONE
     Indication: PAIN
     Dosage: UNK
     Route: 065
     Dates: start: 200607
  8. TILIDIN N [Suspect]
     Active Substance: NALOXONE HYDROCHLORIDE\TILIDINE HYDROCHLORIDE
     Indication: ARTHRALGIA
     Dosage: 2 DOSAGE FORM, QD (1 DF, BID)
     Route: 065
  9. MIRTAZAPINE. [Suspect]
     Active Substance: MIRTAZAPINE
     Indication: PRODUCT USED FOR UNKNOWN INDICATION
     Dosage: 15 MILLIGRAM, QD
     Route: 065
  10. DULOXETINE HYDROCHLORIDE. [Suspect]
     Active Substance: DULOXETINE HYDROCHLORIDE
     Indication: FIBROMYALGIA

REACTIONS (7)
  - Back pain [Unknown]
  - Iliotibial band syndrome [Unknown]
  - Arthralgia [Unknown]
  - Gait disturbance [Unknown]
  - Bursitis [Unknown]
  - Musculoskeletal pain [Unknown]
  - Trendelenburg^s symptom [Unknown]

NARRATIVE: CASE EVENT DATE: 2013
